FAERS Safety Report 26121530 (Version 1)
Quarter: 2025Q4

REPORT INFORMATION
  Report Type: Spontaneous
  Country: GB (occurrence: GB)
  Receive Date: 20251204
  Receipt Date: 20251204
  Transmission Date: 20260118
  Serious: Yes (Life-Threatening, Other)
  Sender: MYLAN
  Company Number: None

PATIENT
  Age: 27 Year
  Sex: Male
  Weight: 80 kg

DRUGS (8)
  1. CITALOPRAM [Interacting]
     Active Substance: CITALOPRAM
     Indication: Product used for unknown indication
     Dosage: 1 DOSAGE FORM, QD (ONE TO BE TAKEN EACH DAY - PLEASE ISSUE ON THE)
     Dates: start: 20250827
  2. CITALOPRAM [Interacting]
     Active Substance: CITALOPRAM
     Dosage: 1 DOSAGE FORM, QD (ONE TO BE TAKEN EACH DAY - PLEASE ISSUE ON THE)
     Route: 065
     Dates: start: 20250827
  3. CITALOPRAM [Interacting]
     Active Substance: CITALOPRAM
     Dosage: 1 DOSAGE FORM, QD (ONE TO BE TAKEN EACH DAY - PLEASE ISSUE ON THE)
     Route: 065
     Dates: start: 20250827
  4. CITALOPRAM [Interacting]
     Active Substance: CITALOPRAM
     Dosage: 1 DOSAGE FORM, QD (ONE TO BE TAKEN EACH DAY - PLEASE ISSUE ON THE)
     Dates: start: 20250827
  5. ITRACONAZOLE [Interacting]
     Active Substance: ITRACONAZOLE
     Indication: Product used for unknown indication
     Dosage: 200 MILLIGRAM, QD (TAKE TWO TABLETS DAILY100MG CAPSULES)
     Dates: start: 20250908
  6. ITRACONAZOLE [Interacting]
     Active Substance: ITRACONAZOLE
     Dosage: 200 MILLIGRAM, QD (TAKE TWO TABLETS DAILY100MG CAPSULES)
     Route: 065
     Dates: start: 20250908
  7. ITRACONAZOLE [Interacting]
     Active Substance: ITRACONAZOLE
     Dosage: 200 MILLIGRAM, QD (TAKE TWO TABLETS DAILY100MG CAPSULES)
     Route: 065
     Dates: start: 20250908
  8. ITRACONAZOLE [Interacting]
     Active Substance: ITRACONAZOLE
     Dosage: 200 MILLIGRAM, QD (TAKE TWO TABLETS DAILY100MG CAPSULES)
     Dates: start: 20250908

REACTIONS (2)
  - Serotonin syndrome [Recovering/Resolving]
  - Drug interaction [Unknown]
